FAERS Safety Report 5825049-3 (Version None)
Quarter: 2008Q3

REPORT INFORMATION
  Report Type: 
  Country: None (occurrence: None)
  Receive Date: 20080729
  Receipt Date: 20080717
  Transmission Date: 20090109
  Serious: Yes (Other)
  Sender: FDA-Public Use
  Company Number: US-ELI_LILLY_AND_COMPANY-US200807004088

PATIENT
  Age: 55 Year
  Sex: Male

DRUGS (2)
  1. ZYPREXA [Suspect]
     Dosage: 15 MG, 2/D
     Dates: start: 20080201
  2. DEPAKOTE [Concomitant]

REACTIONS (1)
  - PANCYTOPENIA [None]
